FAERS Safety Report 6445188-6 (Version None)
Quarter: 2009Q4

REPORT INFORMATION
  Report Type: 
  Country: None (occurrence: None)
  Receive Date: 20091118
  Receipt Date: 20081203
  Transmission Date: 20100525
  Serious: No
  Sender: FDA-Public Use
  Company Number: US-BRISTOL-MYERS SQUIBB COMPANY-14429609

PATIENT
  Age: 60 Year
  Sex: Female
  Weight: 111 kg

DRUGS (11)
  1. GLUCOPHAGE XR [Suspect]
     Dates: start: 20000101
  2. ALDACTONE [Concomitant]
  3. SYNTHROID [Concomitant]
  4. ZESTRIL [Concomitant]
  5. TOPROL-XL [Concomitant]
  6. MEDROXYPROGESTERONE [Concomitant]
  7. ASPIRIN [Concomitant]
  8. CHLORTHALIDONE [Concomitant]
  9. MULTI-VITAMINS [Concomitant]
  10. VITAMIN B COMPLEX CAP [Concomitant]
  11. CALCIUM [Concomitant]

REACTIONS (1)
  - DRUG INEFFECTIVE [None]
